FAERS Safety Report 6014064-5 (Version None)
Quarter: 2008Q4

REPORT INFORMATION
  Report Type: 
  Country: None (occurrence: None)
  Receive Date: 20081219
  Receipt Date: 20071116
  Transmission Date: 20090506
  Serious: No
  Sender: FDA-Public Use
  Company Number: A0694981A

PATIENT
  Sex: Male

DRUGS (2)
  1. AVODART [Suspect]
     Indication: PROSTATE CANCER
     Dosage: 2CAPL PER DAY
     Route: 048
     Dates: start: 20061101, end: 20070701
  2. RADIATION THERAPY [Concomitant]

REACTIONS (1)
  - PROSTATIC SPECIFIC ANTIGEN DECREASED [None]
